FAERS Safety Report 24970029 (Version 1)
Quarter: 2025Q1

REPORT INFORMATION
  Report Type: Spontaneous
  Country: US (occurrence: US)
  Receive Date: 20250214
  Receipt Date: 20250214
  Transmission Date: 20250409
  Serious: Yes (Other)
  Sender: Haleon PLC
  Company Number: US-SANDOZ-SDZ2024US045659

PATIENT

DRUGS (7)
  1. DICLOFENAC [Suspect]
     Active Substance: DICLOFENAC
     Indication: Product used for unknown indication
     Route: 065
  2. FAMOTIDINE [Suspect]
     Active Substance: FAMOTIDINE
     Indication: Product used for unknown indication
     Route: 065
  3. MONTELUKAST SODIUM [Suspect]
     Active Substance: MONTELUKAST SODIUM
     Indication: Product used for unknown indication
     Route: 065
  4. XOLAIR [Suspect]
     Active Substance: OMALIZUMAB
     Indication: Product used for unknown indication
     Route: 065
  5. ZYRTEC [Suspect]
     Active Substance: CETIRIZINE HYDROCHLORIDE
     Indication: Product used for unknown indication
     Route: 065
  6. CETIRIZINE HYDROCHLORIDE [Suspect]
     Active Substance: CETIRIZINE HYDROCHLORIDE
     Indication: Product used for unknown indication
     Route: 065
  7. QUERCETIN [Suspect]
     Active Substance: QUERCETIN
     Indication: Product used for unknown indication
     Route: 065

REACTIONS (4)
  - Suicidal ideation [Recovered/Resolved]
  - Pruritus [Unknown]
  - Intestinal barrier dysfunction [Unknown]
  - Urticaria [Unknown]
